FAERS Safety Report 11894849 (Version 2)
Quarter: 2016Q1

REPORT INFORMATION
  Report Type: Spontaneous
  Country: US (occurrence: US)
  Receive Date: 20160107
  Receipt Date: 20160121
  Transmission Date: 20160526
  Serious: Yes (Hospitalization, Other)
  Sender: FDA-Public Use
  Company Number: US-JAZZ-2016-US-000005

PATIENT
  Age: 44 Year
  Sex: Female

DRUGS (6)
  1. METOPROLOL. [Concomitant]
     Active Substance: METOPROLOL
     Indication: TACHYCARDIA
     Dosage: 50 MG, BID
  2. BENZTROPINE [Concomitant]
     Active Substance: BENZTROPINE
  3. DEPAKOTE [Concomitant]
     Active Substance: DIVALPROEX SODIUM
  4. RISPERIDONE. [Concomitant]
     Active Substance: RISPERIDONE
     Dosage: 4 MG, UNK
  5. CLOZAPINE. [Suspect]
     Active Substance: CLOZAPINE
     Indication: SCHIZOAFFECTIVE DISORDER BIPOLAR TYPE
     Dosage: 25-500MG DAILY (DOSE VARIANCE)
  6. VALPROIC ACID. [Concomitant]
     Active Substance: VALPROIC ACID
     Dosage: 1250 MG, QD

REACTIONS (6)
  - Tachycardia [Unknown]
  - Sedation [Unknown]
  - Toxicity to various agents [Unknown]
  - Pneumonia [None]
  - Atrial fibrillation [None]
  - Myocarditis [Unknown]

NARRATIVE: CASE EVENT DATE: 20140716
